FAERS Safety Report 7705068-2 (Version None)
Quarter: 2011Q3

REPORT INFORMATION
  Report Type: 
  Country: None (occurrence: None)
  Receive Date: 20110823
  Receipt Date: 20110817
  Transmission Date: 20111222
  Serious: Yes (Other)
  Sender: FDA-Public Use
  Company Number: JP-MERCK-1104USA03932

PATIENT
  Age: 38 Year
  Sex: Female

DRUGS (5)
  1. PRIMAXIN [Suspect]
     Indication: ENDOCARDITIS
     Dosage: DAILY DOSAGE UNKNOWN
     Route: 065
  2. CEFAZOLIN SODIUM [Concomitant]
     Indication: ENDOCARDITIS
     Dosage: DAILY DOSAGE UNKNOWN
     Route: 065
  3. TEICOPLANIN [Concomitant]
     Indication: ENDOCARDITIS
     Dosage: DAILY DOSAGE UNKNOWN
     Route: 041
  4. GARENOXACIN MESYLATE [Concomitant]
     Indication: ENDOCARDITIS
     Dosage: DAILY DOSAGE UNKNOWN
     Route: 048
  5. GENTAMICIN SULFATE [Suspect]
     Indication: ENDOCARDITIS
     Route: 065

REACTIONS (2)
  - AGRANULOCYTOSIS [None]
  - INNER EAR DISORDER [None]
